FAERS Safety Report 16831815 (Version 2)
Quarter: 2019Q4

REPORT INFORMATION
  Report Type: Spontaneous
  Country: JP (occurrence: JP)
  Receive Date: 20190920
  Receipt Date: 20191010
  Transmission Date: 20200122
  Serious: Yes (Disabling)
  Sender: FDA-Public Use
  Company Number: JP-ACCORD-154787

PATIENT
  Age: 39 Year
  Sex: Female

DRUGS (6)
  1. LOMERIZINE [Suspect]
     Active Substance: LOMERIZINE
     Indication: MIGRAINE WITHOUT AURA
     Dates: start: 2017
  2. AMITRIPTYLINE [Suspect]
     Active Substance: AMITRIPTYLINE
     Indication: MIGRAINE WITHOUT AURA
     Dates: start: 2017
  3. AMITRIPTYLINE [Suspect]
     Active Substance: AMITRIPTYLINE
     Indication: MIGRAINE WITHOUT AURA
  4. VALPROIC ACID. [Suspect]
     Active Substance: VALPROIC ACID
     Indication: MIGRAINE WITHOUT AURA
     Dates: start: 2017
  5. SUMATRIPTAN. [Concomitant]
     Active Substance: SUMATRIPTAN
     Indication: MIGRAINE WITHOUT AURA
     Route: 048
  6. SUMATRIPTAN. [Concomitant]
     Active Substance: SUMATRIPTAN
     Indication: MIGRAINE WITHOUT AURA
     Dosage: SELF-ADMINISTERED
     Route: 058

REACTIONS (2)
  - Somnolence [Unknown]
  - Impaired work ability [Unknown]

NARRATIVE: CASE EVENT DATE: 2017
